FAERS Safety Report 24988537 (Version 3)
Quarter: 2025Q4

REPORT INFORMATION
  Report Type: Report from Study
  Country: GB (occurrence: GB)
  Receive Date: 20250220
  Receipt Date: 20251111
  Transmission Date: 20260118
  Serious: Yes (Hospitalization, Other)
  Sender: UCB
  Company Number: GB-UCBSA-2024058907

PATIENT
  Age: 29 Year

DRUGS (1)
  1. CERTOLIZUMAB PEGOL [Suspect]
     Active Substance: CERTOLIZUMAB PEGOL
     Indication: Juvenile idiopathic arthritis
     Dosage: 200 MILLIGRAM, EV 2 WEEKS(QOW)

REACTIONS (6)
  - Lower respiratory tract infection [Unknown]
  - Eye operation [Recovered/Resolved]
  - Surgery [Unknown]
  - Malaise [Recovered/Resolved]
  - Infection [Unknown]
  - Intentional dose omission [Unknown]
